FAERS Safety Report 25540663 (Version 2)
Quarter: 2025Q3

REPORT INFORMATION
  Report Type: Other
  Country: US (occurrence: US)
  Receive Date: 20250710
  Receipt Date: 20250917
  Transmission Date: 20251021
  Serious: No
  Sender: TRAVERE THERAPEUTICS
  Company Number: US-TRAVERE-2025TVT01051

PATIENT
  Age: 61 Year
  Sex: Female

DRUGS (2)
  1. FILSPARI [Suspect]
     Active Substance: SPARSENTAN
     Indication: IgA nephropathy
     Dosage: 200 MG ONCE DAILY ON DAY 1 THROUGH 14 THEN TAKE 2 TABLETS ONCE DAILY DAYS 15-30
     Route: 048
     Dates: start: 20250619
  2. FILSPARI [Suspect]
     Active Substance: SPARSENTAN
     Route: 048

REACTIONS (7)
  - Dizziness [Unknown]
  - Fluid retention [Unknown]
  - Weight increased [Unknown]
  - Hypotension [Unknown]
  - Feeling abnormal [Recovering/Resolving]
  - Decreased appetite [Unknown]
  - Asthenia [Unknown]
